FAERS Safety Report 11713573 (Version 1)
Quarter: 2015Q4

REPORT INFORMATION
  Report Type: Report from Study
  Country: US (occurrence: US)
  Receive Date: 20151109
  Receipt Date: 20151109
  Transmission Date: 20160304
  Serious: No
  Sender: FDA-Public Use
  Company Number: PHEH2015US022574

PATIENT
  Sex: Male

DRUGS (1)
  1. FARYDAK [Suspect]
     Active Substance: PANOBINOSTAT
     Indication: PLASMA CELL MYELOMA
     Dosage: 20 MG, QOD ON MONDAY, WEDNESDAY AND FRIDAY EVERY OTHER WEEK (WEEKS 1 AND 3)
     Route: 048
     Dates: start: 20151002

REACTIONS (2)
  - Vomiting [Unknown]
  - Diarrhoea [Unknown]
